FAERS Safety Report 6728627-2 (Version None)
Quarter: 2010Q2

REPORT INFORMATION
  Report Type: 
  Country: None (occurrence: None)
  Receive Date: 20100517
  Receipt Date: 20100505
  Transmission Date: 20101027
  Serious: Yes (Hospitalization, Other)
  Sender: FDA-Public Use
  Company Number: AT-ELI_LILLY_AND_COMPANY-AT201005001347

PATIENT
  Age: 26 Year
  Sex: Female

DRUGS (5)
  1. ZYPREXA [Suspect]
     Dosage: UNK, UNKNOWN
     Route: 065
  2. ZYPREXA [Suspect]
     Dosage: UNK UNK, DAILY (1/D)
     Dates: start: 20100305, end: 20100316
  3. ZYPREXA [Suspect]
     Dosage: 10 MG, DAILY (1/D)
     Dates: start: 20100317, end: 20100320
  4. ZYPREXA [Suspect]
     Dosage: 15 MG, DAILY (1/D)
     Dates: start: 20100321, end: 20100415
  5. LORAZEPAM [Concomitant]
     Dosage: UNK UNK, DAILY (1/D)
     Dates: start: 20100305, end: 20100326

REACTIONS (3)
  - OVERDOSE [None]
  - PARKINSONISM [None]
  - PSYCHOTIC DISORDER [None]
